FAERS Safety Report 13358278 (Version 1)
Quarter: 2017Q1

REPORT INFORMATION
  Report Type: Spontaneous
  Country: US (occurrence: US)
  Receive Date: 20170322
  Receipt Date: 20170322
  Transmission Date: 20170429
  Serious: Yes (Death, Life-Threatening, Hospitalization, Other)
  Sender: FDA-Public Use
  Company Number: None

PATIENT
  Age: 89 Year
  Sex: Male
  Weight: 73.55 kg

DRUGS (11)
  1. SILVER CENTRUM [Concomitant]
  2. BENZONATATE 200MG SUBSTITUTE FOR TESSELON 200MG CAP [Suspect]
     Active Substance: BENZONATATE
     Indication: COUGH
     Dosage: ?          QUANTITY:AT);?
     Route: 048
     Dates: start: 20170109, end: 20170109
  3. TIMOLOL MALEATE. [Concomitant]
     Active Substance: TIMOLOL MALEATE
  4. CITRACAL [Concomitant]
     Active Substance: CALCIUM CITRATE
  5. A REDS (LUTEIN) [Concomitant]
  6. VITAMINS [Concomitant]
     Active Substance: VITAMINS
  7. COQ10 [Concomitant]
     Active Substance: UBIDECARENONE
  8. LAISARTIN [Concomitant]
  9. OMEGA 3 [Concomitant]
     Active Substance: OMEGA-3 FATTY ACIDS
  10. FLAXSEED [Concomitant]
     Active Substance: FLAX SEED
  11. ALENDRONATE SODIUM. [Concomitant]
     Active Substance: ALENDRONATE SODIUM

REACTIONS (5)
  - Vomiting [None]
  - Musculoskeletal pain [None]
  - Disorientation [None]
  - Fall [None]
  - Tremor [None]

NARRATIVE: CASE EVENT DATE: 20170109
